FAERS Safety Report 8114930-0 (Version None)
Quarter: 2012Q1

REPORT INFORMATION
  Report Type: 
  Country: None (occurrence: None)
  Receive Date: 20120201
  Receipt Date: 20120117
  Transmission Date: 20120608
  Serious: Yes (Other)
  Sender: FDA-Public Use
  Company Number: 1165683

PATIENT
  Age: 55 Year
  Sex: Male
  Weight: 109.55 kg

DRUGS (1)
  1. LIDOCAINE HYDROCHLORIDE [Suspect]
     Indication: INDUCTION OF ANAESTHESIA
     Dosage: ENDOTRACHEAL
     Route: 007
     Dates: start: 20120113, end: 20120113

REACTIONS (3)
  - FOREIGN BODY [None]
  - DEVICE COMPONENT ISSUE [None]
  - DEVICE BREAKAGE [None]
